FAERS Safety Report 15290192 (Version 1)
Quarter: 2018Q3

REPORT INFORMATION
  Report Type: Spontaneous
  Country: US (occurrence: US)
  Receive Date: 20180817
  Receipt Date: 20180817
  Transmission Date: 20181010
  Serious: No
  Sender: FDA-Public Use
  Company Number: US-SA-2018SA225684

PATIENT
  Age: 34 Year
  Sex: Male

DRUGS (5)
  1. NASACORT [Concomitant]
     Active Substance: TRIAMCINOLONE ACETONIDE
  2. DUPIXENT [Suspect]
     Active Substance: DUPILUMAB
     Indication: PSORIASIS
     Dosage: 300 MG, QOW
     Route: 058
     Dates: start: 20180504
  3. CLOBETASOL [Concomitant]
     Active Substance: CLOBETASOL
  4. BENADRYL N [Concomitant]
  5. CLARITINE [Concomitant]
     Active Substance: LORATADINE

REACTIONS (1)
  - Pruritus [Not Recovered/Not Resolved]
